FAERS Safety Report 25010946 (Version 3)
Quarter: 2025Q1

REPORT INFORMATION
  Report Type: Spontaneous
  Country: US (occurrence: US)
  Receive Date: 20250225
  Receipt Date: 20250326
  Transmission Date: 20250408
  Serious: No
  Sender: ELI LILLY AND COMPANY
  Company Number: US-ELI_LILLY_AND_COMPANY-US202502012611

PATIENT
  Age: 29 Year
  Sex: Female

DRUGS (6)
  1. EMGALITY [Suspect]
     Active Substance: GALCANEZUMAB-GNLM
     Indication: Migraine
     Route: 058
  2. EMGALITY [Suspect]
     Active Substance: GALCANEZUMAB-GNLM
     Route: 058
  3. EMGALITY [Suspect]
     Active Substance: GALCANEZUMAB-GNLM
     Route: 058
  4. EMGALITY [Suspect]
     Active Substance: GALCANEZUMAB-GNLM
     Route: 058
  5. EMGALITY [Suspect]
     Active Substance: GALCANEZUMAB-GNLM
     Route: 058
     Dates: start: 20250223
  6. EMGALITY [Suspect]
     Active Substance: GALCANEZUMAB-GNLM
     Route: 058
     Dates: start: 20250223

REACTIONS (4)
  - Incorrect dose administered by device [Unknown]
  - Injection site haemorrhage [Recovered/Resolved]
  - Injection site mass [Recovered/Resolved]
  - Injection site pruritus [Recovered/Resolved]

NARRATIVE: CASE EVENT DATE: 20250217
